FAERS Safety Report 5143786-3 (Version None)
Quarter: 2006Q4

REPORT INFORMATION
  Report Type: 
  Country: None (occurrence: None)
  Receive Date: 20061101
  Receipt Date: 20061101
  Transmission Date: 20070319
  Serious: Yes (Hospitalization)
  Sender: FDA-Public Use
  Company Number: None

PATIENT
  Sex: Male
  Weight: 56.6996 kg

DRUGS (11)
  1. TAXOTERE [Suspect]
     Indication: NON-SMALL CELL LUNG CANCER
     Dosage: 30MG/M2  ON D1,8,15 Q28D  IV
     Route: 042
     Dates: start: 20061010, end: 20061017
  2. GLEEVEC [Suspect]
     Indication: NON-SMALL CELL LUNG CANCER
     Dosage: 600MG  QD  PO
     Route: 048
     Dates: start: 20061010, end: 20061017
  3. AMBIEN [Concomitant]
  4. ASPIRIN [Concomitant]
  5. LEVOTHROID [Concomitant]
  6. COMPAZINE [Concomitant]
  7. GLYBURIDE [Concomitant]
  8. NEXIUM [Concomitant]
  9. REGLAN [Concomitant]
  10. LEVAQUIN [Concomitant]
  11. DEXAMETHASONE TAB [Concomitant]

REACTIONS (7)
  - DIARRHOEA [None]
  - DYSPNOEA [None]
  - FATIGUE [None]
  - HYPOGLYCAEMIA [None]
  - HYPOKALAEMIA [None]
  - NAUSEA [None]
  - PRODUCTIVE COUGH [None]
